FAERS Safety Report 5402373-X (Version None)
Quarter: 2007Q3

REPORT INFORMATION
  Report Type: 
  Country: None (occurrence: None)
  Receive Date: 20070801
  Receipt Date: 20070725
  Transmission Date: 20080115
  Serious: Yes (Death, Life-Threatening, Hospitalization, Other)
  Sender: FDA-Public Use
  Company Number: FR-ELI_LILLY_AND_COMPANY-FR200703005819

PATIENT
  Age: 58 Year
  Sex: Female
  Weight: 94 kg

DRUGS (8)
  1. ALIMTA [Suspect]
     Indication: NON-SMALL CELL LUNG CANCER
     Dosage: 1000 MG, OTHER
     Route: 042
     Dates: start: 20070201
  2. FOLIC ACID [Concomitant]
     Indication: VITAMIN SUPPLEMENTATION
     Dosage: UNK, UNKNOWN
     Route: 065
  3. VITAMIN B-12 [Concomitant]
     Indication: VITAMIN SUPPLEMENTATION
     Dosage: UNK, UNKNOWN
     Route: 065
  4. METFORMINE [Concomitant]
     Indication: DIABETES MELLITUS
     Dosage: UNK, UNKNOWN
     Route: 065
     Dates: start: 20040101
  5. COKENZEN [Concomitant]
     Indication: HYPERTENSION
     Dosage: UNK, UNKNOWN
     Route: 065
  6. MICARDIS [Concomitant]
     Dosage: UNK, UNKNOWN
     Route: 065
  7. DEXAMETHASONE 0.5MG TAB [Concomitant]
     Indication: PROPHYLAXIS
     Dosage: UNK, UNKNOWN
     Route: 065
  8. DURAGESIC-100 [Concomitant]
     Dosage: UNK, UNKNOWN
     Route: 065

REACTIONS (7)
  - ANAEMIA [None]
  - BETA HAEMOLYTIC STREPTOCOCCAL INFECTION [None]
  - CANDIDA SEPSIS [None]
  - FEBRILE NEUTROPENIA [None]
  - MALIGNANT NEOPLASM PROGRESSION [None]
  - RENAL FAILURE [None]
  - THROMBOCYTOPENIA [None]
